FAERS Safety Report 9720147 (Version 2)
Quarter: 2014Q1

REPORT INFORMATION
  Report Type: Spontaneous
  Country: AR (occurrence: AR)
  Receive Date: 20131129
  Receipt Date: 20140219
  Transmission Date: 20141002
  Serious: Yes (Other)
  Sender: FDA-Public Use
  Company Number: AR-AMGEN-ARGSP2013084050

PATIENT
  Age: 59 Year
  Sex: Female

DRUGS (8)
  1. ENBREL [Suspect]
     Indication: RHEUMATOID ARTHRITIS
     Dosage: 50 MG, WEEKLY
     Route: 065
     Dates: start: 20071101
  2. OMEPRAZOL                          /00661201/ [Concomitant]
     Dosage: 20 MG, ONCE A DAY
  3. SIMVASTATIN [Concomitant]
     Dosage: 40 MG, ONCE A DAY
  4. ASPIRINETAS [Concomitant]
     Dosage: UNK, ONCE A DAY
  5. ATENOLOL [Concomitant]
     Dosage: 50 MG, TWICE A DAY
  6. AMIODARONE [Concomitant]
     Dosage: UNK, ONCE A DAY
  7. DILTIAZEM [Concomitant]
     Dosage: 90 MG, TWICE A DAY
  8. VALSARTAN [Concomitant]
     Dosage: 40 MG, TWICE A DAY

REACTIONS (3)
  - Coronary artery disease [Recovered/Resolved]
  - Joint dislocation [Recovered/Resolved]
  - Osteoarthritis [Recovered/Resolved]
